FAERS Safety Report 15986195 (Version 1)
Quarter: 2019Q1

REPORT INFORMATION
  Report Type: Spontaneous
  Country: US (occurrence: US)
  Receive Date: 20190220
  Receipt Date: 20190220
  Transmission Date: 20190418
  Serious: No
  Sender: FDA-Public Use
  Company Number: US-BAUSCH-BL-2019-003781

PATIENT
  Sex: Female
  Weight: 61.69 kg

DRUGS (1)
  1. PEPCID [Suspect]
     Active Substance: FAMOTIDINE
     Indication: PRODUCT USED FOR UNKNOWN INDICATION
     Dosage: HAD BEEN OFF OF IT FOR YEARS
     Route: 065

REACTIONS (1)
  - Drug ineffective [Recovered/Resolved]
